FAERS Safety Report 24567091 (Version 1)
Quarter: 2024Q4

REPORT INFORMATION
  Report Type: Spontaneous
  Country: US (occurrence: US)
  Receive Date: 20241030
  Receipt Date: 20241030
  Transmission Date: 20250115
  Serious: Yes (Other)
  Sender: NOVO NORDISK
  Company Number: US-NOVOPROD-1304518

PATIENT

DRUGS (2)
  1. OZEMPIC [Suspect]
     Active Substance: SEMAGLUTIDE
     Indication: Product used for unknown indication
     Dosage: 0.5 MG, QW
     Route: 058
     Dates: start: 202405
  2. OZEMPIC [Suspect]
     Active Substance: SEMAGLUTIDE
     Dosage: UNK(RESTRATED)
     Route: 058

REACTIONS (5)
  - Cataract operation [Unknown]
  - Cataract operation [Unknown]
  - Diarrhoea [Unknown]
  - Nausea [Unknown]
  - Product dose confusion [Unknown]

NARRATIVE: CASE EVENT DATE: 20240801
